FAERS Safety Report 6820923-3 (Version None)
Quarter: 2010Q3

REPORT INFORMATION
  Report Type: 
  Country: None (occurrence: None)
  Receive Date: 20100707
  Receipt Date: 20071211
  Transmission Date: 20110219
  Serious: No
  Sender: FDA-Public Use
  Company Number: US-PFIZER INC-2007002946

PATIENT
  Sex: Male
  Weight: 29.48 kg

DRUGS (5)
  1. SERTRALINE [Suspect]
     Indication: ANXIETY
     Dates: start: 20061201
  2. SERTRALINE [Suspect]
     Indication: OBSESSIVE-COMPULSIVE DISORDER
  3. ZOLOFT [Suspect]
     Indication: ANXIETY
  4. ZOLOFT [Suspect]
     Indication: OBSESSIVE-COMPULSIVE DISORDER
  5. RISPERDAL [Concomitant]
     Indication: OBSESSIVE THOUGHTS

REACTIONS (4)
  - AGGRESSION [None]
  - ANXIETY [None]
  - DRUG INEFFECTIVE [None]
  - SELF ESTEEM DECREASED [None]
